FAERS Safety Report 9201968 (Version 2)
Quarter: 2013Q2

REPORT INFORMATION
  Report Type: Spontaneous
  Country: US (occurrence: US)
  Receive Date: 20130401
  Receipt Date: 20130508
  Transmission Date: 20140414
  Serious: Yes (Other)
  Sender: FDA-Public Use
  Company Number: US-PFIZER INC-2013101709

PATIENT
  Age: 58 Year
  Sex: Female
  Weight: 77.1 kg

DRUGS (7)
  1. GABAPENTIN [Suspect]
     Indication: NECK PAIN
     Dosage: UNK
     Dates: start: 2007
  2. GABAPENTIN [Suspect]
     Indication: PAIN IN EXTREMITY
     Dosage: 100 MG, 2X/DAY
     Route: 048
  3. GABAPENTIN [Suspect]
     Indication: PAIN
     Dosage: 400 MG, 2X/DAY
     Route: 048
  4. CYMBALTA [Concomitant]
     Dosage: UNK
  5. ATARAX [Concomitant]
     Indication: NECK PAIN
     Dosage: UNK
  6. ATARAX [Concomitant]
     Indication: BACK PAIN
  7. ZANAFLEX [Concomitant]
     Indication: MUSCLE DISORDER
     Dosage: UNK

REACTIONS (15)
  - Off label use [Unknown]
  - Memory impairment [Unknown]
  - Dysstasia [Unknown]
  - Hypertension [Unknown]
  - Musculoskeletal disorder [Unknown]
  - Limb discomfort [Unknown]
  - Feeling hot [Unknown]
  - Burning sensation [Unknown]
  - Pain in extremity [Unknown]
  - Discomfort [Unknown]
  - Personality change [Unknown]
  - Feeling abnormal [Unknown]
  - Abnormal behaviour [Unknown]
  - Drug ineffective [Unknown]
  - Drug intolerance [Unknown]
